FAERS Safety Report 24825880 (Version 1)
Quarter: 2025Q1

REPORT INFORMATION
  Report Type: Spontaneous
  Country: AU (occurrence: AU)
  Receive Date: 20250109
  Receipt Date: 20250109
  Transmission Date: 20250408
  Serious: Yes (Other)
  Sender: GILEAD
  Company Number: AU-GILEAD-2025-0699301

PATIENT
  Age: 58 Year
  Sex: Male

DRUGS (24)
  1. EMTRIVA [Suspect]
     Active Substance: EMTRICITABINE
     Indication: Prophylaxis against HIV infection
     Route: 065
     Dates: start: 2023
  2. VEMLIDY [Suspect]
     Active Substance: TENOFOVIR ALAFENAMIDE FUMARATE
     Indication: Prophylaxis against HIV infection
     Route: 065
     Dates: start: 2023
  3. MICARDIS [Suspect]
     Active Substance: TELMISARTAN
     Indication: Hypertension
     Dosage: 40 MG, QD
     Route: 048
     Dates: start: 2018
  4. LARODOPA [Suspect]
     Active Substance: LEVODOPA
     Indication: Prophylaxis against HIV infection
     Route: 065
     Dates: start: 2023
  5. BENSERAZIDE\LEVODOPA [Suspect]
     Active Substance: BENSERAZIDE\LEVODOPA
     Indication: Parkinsonism
     Route: 065
     Dates: start: 2021
  6. DAPAGLIFLOZIN PROPANEDIOL [Suspect]
     Active Substance: DAPAGLIFLOZIN PROPANEDIOL
     Indication: Type 2 diabetes mellitus
     Dosage: 10 MG, QD
     Route: 065
     Dates: start: 2023
  7. TELMISARTAN [Suspect]
     Active Substance: TELMISARTAN
     Indication: Hypertension
     Route: 065
     Dates: start: 2018
  8. PROCHLORPERAZINE [Suspect]
     Active Substance: PROCHLORPERAZINE
     Indication: Nausea
     Dosage: 15 MG, QD
     Route: 065
     Dates: start: 2023
  9. ONDANSETRON [Suspect]
     Active Substance: ONDANSETRON
     Indication: Nausea
     Dosage: 24 MG, QD
     Route: 065
     Dates: start: 2023
  10. TIOTROPIUM [Concomitant]
     Active Substance: TIOTROPIUM
     Dates: start: 2018
  11. LINAGLIPTIN\METFORMIN HYDROCHLORIDE [Concomitant]
     Active Substance: LINAGLIPTIN\METFORMIN HYDROCHLORIDE
  12. ENTECAVIR [Concomitant]
     Active Substance: ENTECAVIR
  13. TEMAZEPAM [Concomitant]
     Active Substance: TEMAZEPAM
     Indication: Chronic hepatitis B
     Dates: start: 2022
  14. QUETIAPINE FUMARATE [Concomitant]
     Active Substance: QUETIAPINE FUMARATE
  15. VORTIOXETINE [Concomitant]
     Active Substance: VORTIOXETINE
  16. INSULIN GLARGINE [Concomitant]
     Active Substance: INSULIN GLARGINE
  17. ACETAMINOPHEN [Concomitant]
     Active Substance: ACETAMINOPHEN
     Dates: start: 2018
  18. DIAZEPAM [Concomitant]
     Active Substance: DIAZEPAM
  19. BUDESONIDE\FORMOTEROL [Concomitant]
     Active Substance: BUDESONIDE\FORMOTEROL
  20. ALBUTEROL [Concomitant]
     Active Substance: ALBUTEROL
  21. LEVOTHYROXINE [Concomitant]
     Active Substance: LEVOTHYROXINE
  22. ATORVASTATIN [Concomitant]
     Active Substance: ATORVASTATIN
     Indication: Hypercholesterolaemia
     Dates: start: 2018
  23. FENOFIBRATE [Concomitant]
     Active Substance: FENOFIBRATE
     Dates: start: 2018
  24. INSULIN GLARGINE [Concomitant]
     Active Substance: INSULIN GLARGINE

REACTIONS (5)
  - Starvation ketoacidosis [Recovering/Resolving]
  - Nephropathy toxic [Unknown]
  - Acute kidney injury [Recovered/Resolved]
  - Constipation [Unknown]
  - Dehydration [Unknown]
